FAERS Safety Report 18517994 (Version 1)
Quarter: 2020Q4

REPORT INFORMATION
  Report Type: Spontaneous
  Country: US (occurrence: US)
  Receive Date: 20201118
  Receipt Date: 20201118
  Transmission Date: 20210114
  Serious: No
  Sender: FDA-Public Use
  Company Number: US-PFIZER INC-2020307181

PATIENT
  Sex: Female

DRUGS (4)
  1. TEGRETOL [Concomitant]
     Active Substance: CARBAMAZEPINE
     Indication: TRIGEMINAL NEURALGIA
     Dosage: 400MG IN THE MORNING AND 600MG IN THE EVENING
     Route: 048
  2. LYRICA [Suspect]
     Active Substance: PREGABALIN
     Indication: TRIGEMINAL NEURALGIA
     Dosage: 150 MG, AT NIGHT
     Route: 048
  3. LYRICA [Suspect]
     Active Substance: PREGABALIN
     Dosage: 150 MG, TWICE DAILY
     Route: 048
     Dates: start: 2007
  4. LYRICA [Suspect]
     Active Substance: PREGABALIN
     Dosage: 50MG IN THE MORNING AND 150MG AT NIGHT
     Route: 048

REACTIONS (5)
  - Weight increased [Recovering/Resolving]
  - Memory impairment [Recovering/Resolving]
  - Intentional product misuse [Unknown]
  - Feeling abnormal [Recovering/Resolving]
  - Speech disorder [Recovering/Resolving]
